FAERS Safety Report 4582961-3 (Version None)
Quarter: 2005Q1

REPORT INFORMATION
  Report Type: 
  Country: None (occurrence: None)
  Receive Date: 20050127
  Receipt Date: 20040917
  Transmission Date: 20050727
  Serious: No
  Sender: FDA-Public Use
  Company Number: USA040978620

PATIENT
  Sex: Male
  Weight: 48 kg

DRUGS (1)
  1. STRATTERA [Suspect]
     Indication: ATTENTION DEFICIT/HYPERACTIVITY DISORDER
     Dosage: 90 MG/1 IN THE MORNING
     Dates: start: 20031101

REACTIONS (3)
  - NERVOUSNESS [None]
  - PRESCRIBED OVERDOSE [None]
  - SOMNOLENCE [None]
